FAERS Safety Report 21789085 (Version 1)
Quarter: 2022Q4

REPORT INFORMATION
  Report Type: Spontaneous
  Country: NO (occurrence: NO)
  Receive Date: 20221228
  Receipt Date: 20221228
  Transmission Date: 20230113
  Serious: Yes (Hospitalization, Other)
  Sender: FDA-Public Use
  Company Number: NO-SA-SAC20221219000914

PATIENT
  Sex: Female

DRUGS (13)
  1. OLANZAPINE [Suspect]
     Active Substance: OLANZAPINE
     Indication: Psychotic disorder
     Dosage: UNK UNK, UNKNOWN
     Route: 065
  2. OLANZAPINE [Suspect]
     Active Substance: OLANZAPINE
     Indication: Mania
  3. VALPROATE SODIUM [Suspect]
     Active Substance: VALPROATE SODIUM
     Indication: Mania
     Dosage: UNK UNK, UNKNOWN
     Route: 065
  4. VALPROATE SODIUM [Suspect]
     Active Substance: VALPROATE SODIUM
     Indication: Psychotic disorder
  5. CHLORPROTHIXENE [Suspect]
     Active Substance: CHLORPROTHIXENE
     Indication: Mania
     Dosage: UNK UNK, UNKNOWN
     Route: 065
  6. CHLORPROTHIXENE [Suspect]
     Active Substance: CHLORPROTHIXENE
     Indication: Psychotic disorder
  7. IMOVANE [Suspect]
     Active Substance: ZOPICLONE
     Indication: Psychotic disorder
     Dosage: UNK UNK, UNKNOWN
     Route: 065
     Dates: end: 2018
  8. IMOVANE [Suspect]
     Active Substance: ZOPICLONE
     Indication: Mania
  9. QUETIAPINE FUMARATE [Suspect]
     Active Substance: QUETIAPINE FUMARATE
     Indication: Mania
     Dosage: UNK, UNKNOWN
     Route: 065
  10. QUETIAPINE FUMARATE [Suspect]
     Active Substance: QUETIAPINE FUMARATE
     Indication: Psychotic disorder
  11. CANNABIS SATIVA SUBSP. INDICA TOP [Concomitant]
     Active Substance: CANNABIS SATIVA SUBSP. INDICA TOP
     Indication: Product used for unknown indication
  12. HEROIN [Concomitant]
     Active Substance: DIAMORPHINE
     Indication: Product used for unknown indication
  13. COCAINE [Concomitant]
     Active Substance: COCAINE
     Indication: Product used for unknown indication

REACTIONS (14)
  - Psychotic symptom [Unknown]
  - Hypomania [Unknown]
  - Drug abuse [Unknown]
  - Bipolar disorder [Unknown]
  - Psychotic disorder due to a general medical condition [Unknown]
  - Psychotic disorder [Unknown]
  - Attention deficit hyperactivity disorder [Unknown]
  - Anxiety [Unknown]
  - Obsessive-compulsive disorder [Unknown]
  - Nightmare [Unknown]
  - Mania [Unknown]
  - Post-traumatic stress disorder [Unknown]
  - Affective disorder [Unknown]
  - Weight increased [Unknown]

NARRATIVE: CASE EVENT DATE: 20110301
